FAERS Safety Report 8540160-4 (Version None)
Quarter: 2012Q3

REPORT INFORMATION
  Report Type: 
  Country: None (occurrence: None)
  Receive Date: 20120726
  Receipt Date: 20120717
  Transmission Date: 20120928
  Serious: Yes (Hospitalization)
  Sender: FDA-Public Use
  Company Number: PL-ASTRAZENECA-2012SE50130

PATIENT
  Age: 19784 Day
  Sex: Male

DRUGS (2)
  1. FLUTICASONE PROPIONATE/SALMETEROL [Concomitant]
     Indication: ASTHMA
     Route: 055
     Dates: end: 20120427
  2. SYMBICORT [Suspect]
     Indication: ASTHMA
     Dosage: 160/4.5UG TWO ACTUATIONS BID
     Route: 055
     Dates: start: 20120428, end: 20120711

REACTIONS (1)
  - COLORECTAL CANCER [None]
